FAERS Safety Report 24045758 (Version 3)
Quarter: 2024Q3

REPORT INFORMATION
  Report Type: Spontaneous
  Country: IE (occurrence: IE)
  Receive Date: 20240703
  Receipt Date: 20240905
  Transmission Date: 20241016
  Serious: Yes (Hospitalization)
  Sender: NOVARTIS
  Company Number: IE-002147023-NVSC2024IE135590

PATIENT
  Sex: Male

DRUGS (1)
  1. COSENTYX [Suspect]
     Active Substance: SECUKINUMAB
     Indication: Spondyloarthropathy
     Dosage: 300 MG
     Route: 065
     Dates: start: 202402

REACTIONS (4)
  - Polyarteritis nodosa [Unknown]
  - Vasculitis [Unknown]
  - Pyrexia [Unknown]
  - Muscular weakness [Unknown]

NARRATIVE: CASE EVENT DATE: 20240101
